FAERS Safety Report 9879758 (Version 1)
Quarter: 2014Q1

REPORT INFORMATION
  Report Type: Spontaneous
  Country: GB (occurrence: GB)
  Receive Date: 20140206
  Receipt Date: 20140206
  Transmission Date: 20141002
  Serious: Yes (Other)
  Sender: FDA-Public Use
  Company Number: PHHY2014GB011595

PATIENT
  Age: 38 Year
  Sex: Female
  Weight: 90 kg

DRUGS (1)
  1. PENICILLIN V POTASSIUM [Suspect]
     Indication: PHARYNGITIS
     Dosage: 250 MG
     Route: 048
     Dates: start: 20140116, end: 20140122

REACTIONS (3)
  - Pollakiuria [Not Recovered/Not Resolved]
  - Anger [Not Recovered/Not Resolved]
  - Irritability [Not Recovered/Not Resolved]
